FAERS Safety Report 18868880 (Version 2)
Quarter: 2021Q2

REPORT INFORMATION
  Report Type: Spontaneous
  Country: US (occurrence: US)
  Receive Date: 20210210
  Receipt Date: 20210518
  Transmission Date: 20210717
  Serious: Yes (Other)
  Sender: FDA-Public Use
  Company Number: US-GILEAD-2021-0515312

PATIENT
  Age: 41 Year
  Sex: Male

DRUGS (2)
  1. GENVOYA [Concomitant]
     Active Substance: COBICISTAT\ELVITEGRAVIR\EMTRICITABINE\TENOFOVIR ALAFENAMIDE FUMARATE
  2. ATRIPLA [Suspect]
     Active Substance: EFAVIRENZ\EMTRICITABINE\TENOFOVIR DISOPROXIL FUMARATE
     Indication: HIV INFECTION
     Dosage: UNK
     Route: 048
     Dates: start: 200612, end: 201803

REACTIONS (6)
  - Acute kidney injury [Not Recovered/Not Resolved]
  - Nephrotic syndrome [Not Recovered/Not Resolved]
  - Chronic kidney disease [Not Recovered/Not Resolved]
  - Bone loss [Unknown]
  - Bone density decreased [Not Recovered/Not Resolved]
  - Osteonecrosis [Unknown]

NARRATIVE: CASE EVENT DATE: 201702
